FAERS Safety Report 12405778 (Version 1)
Quarter: 2016Q2

REPORT INFORMATION
  Report Type: Spontaneous
  Country: US (occurrence: None)
  Receive Date: 20160525
  Receipt Date: 20160525
  Transmission Date: 20160815
  Serious: No
  Sender: FDA-Public Use
  Company Number: None

PATIENT
  Age: 61 Year
  Sex: Male
  Weight: 80.9 kg

DRUGS (1)
  1. SULFACETAMIDE. [Suspect]
     Active Substance: SULFACETAMIDE
     Indication: CONJUNCTIVITIS
     Dosage: 2 DROPS TID EYE
     Route: 031
     Dates: start: 20160519, end: 20160520

REACTIONS (1)
  - Conjunctival oedema [None]

NARRATIVE: CASE EVENT DATE: 20160520
